FAERS Safety Report 10447926 (Version 1)
Quarter: 2014Q3

REPORT INFORMATION
  Report Type: Spontaneous
  Country: US (occurrence: US)
  Receive Date: 20140911
  Receipt Date: 20140911
  Transmission Date: 20150326
  Serious: Yes (Hospitalization, Other)
  Sender: FDA-Public Use
  Company Number: US-ELI_LILLY_AND_COMPANY-US201409001177

PATIENT
  Sex: Female

DRUGS (6)
  1. INSULIN LISPRO [Suspect]
     Active Substance: INSULIN LISPRO
     Dosage: 50 U, EACH EVENING
     Route: 065
  2. LANTUS [Concomitant]
     Active Substance: INSULIN GLARGINE
  3. HUMALOG [Suspect]
     Active Substance: INSULIN LISPRO
     Indication: TYPE 2 DIABETES MELLITUS
     Dosage: 40 U, EACH MORNING
     Route: 065
  4. INSULIN LISPRO [Suspect]
     Active Substance: INSULIN LISPRO
     Indication: TYPE 2 DIABETES MELLITUS
     Dosage: 40 U, EACH MORNING
     Route: 065
  5. HUMALOG [Suspect]
     Active Substance: INSULIN LISPRO
     Dosage: 50 U, EACH EVENING
     Route: 065
  6. NOVOLOG [Concomitant]
     Active Substance: INSULIN ASPART

REACTIONS (4)
  - Malaise [Unknown]
  - Loss of consciousness [Unknown]
  - Pancreatic disorder [Not Recovered/Not Resolved]
  - Diabetic neuropathy [Unknown]

NARRATIVE: CASE EVENT DATE: 2007
